FAERS Safety Report 9921727 (Version 1)
Quarter: 2014Q1

REPORT INFORMATION
  Report Type: Spontaneous
  Country: US (occurrence: CA)
  Receive Date: 20140225
  Receipt Date: 20140225
  Transmission Date: 20141002
  Serious: Yes (Hospitalization)
  Sender: FDA-Public Use
  Company Number: CA-FRI-1000054422

PATIENT
  Age: 62 Year
  Sex: Male

DRUGS (1)
  1. ROFLUMILAST [Suspect]
     Dosage: 500 MCG
     Route: 048
     Dates: start: 20131009

REACTIONS (3)
  - Cataract operation [Unknown]
  - Joint swelling [Unknown]
  - Pulmonary congestion [Recovering/Resolving]
